FAERS Safety Report 9223779 (Version 1)
Quarter: 2013Q2

REPORT INFORMATION
  Report Type: Spontaneous
  Country: US (occurrence: US)
  Receive Date: 20130410
  Receipt Date: 20130410
  Transmission Date: 20140414
  Serious: No
  Sender: FDA-Public Use
  Company Number: US-ASTRAZENECA-2013SE20496

PATIENT
  Age: 56 Year
  Sex: Male
  Weight: 145.2 kg

DRUGS (4)
  1. NEXIUM [Suspect]
     Indication: GASTROOESOPHAGEAL REFLUX DISEASE
     Route: 048
     Dates: start: 2010
  2. OTHER ACID REFLUX MEDICATION [Suspect]
  3. VICODIN [Concomitant]
     Indication: BACK PAIN
     Dosage: 7.5MG/500MG
     Dates: start: 2011
  4. DICLOFANOTE/VALTEREN [Concomitant]
     Indication: LIMB INJURY

REACTIONS (4)
  - Diabetes mellitus [Not Recovered/Not Resolved]
  - Glycosylated haemoglobin increased [Not Recovered/Not Resolved]
  - Muscle spasms [Recovering/Resolving]
  - Drug dose omission [Unknown]
